FAERS Safety Report 5444552-1 (Version None)
Quarter: 2007Q3

REPORT INFORMATION
  Report Type: 
  Country: None (occurrence: None)
  Receive Date: 20070906
  Receipt Date: 20070830
  Transmission Date: 20080115
  Serious: Yes (Death, Life-Threatening, Other)
  Sender: FDA-Public Use
  Company Number: GB-AVENTIS-200511910GDDC

PATIENT
  Age: 33 Month
  Sex: Female
  Weight: 11.36 kg

DRUGS (5)
  1. DDAVP [Suspect]
     Indication: HYPOPITUITARISM
     Route: 048
     Dates: start: 20020101, end: 20040824
  2. DDAVP [Suspect]
     Route: 048
     Dates: start: 20040824
  3. HYDROCORTISONE [Concomitant]
     Indication: HYPOPITUITARISM
  4. LEVOTHYROXINE SODIUM [Concomitant]
     Indication: HYPOPITUITARISM
  5. HUMAN GROWTH HORMONE, RECOMBINANT [Concomitant]
     Indication: HYPOPITUITARISM
     Dosage: DOSE: UNK

REACTIONS (3)
  - CONVULSION [None]
  - HYPONATRAEMIA [None]
  - OVERDOSE [None]
